FAERS Safety Report 13778469 (Version 19)
Quarter: 2020Q1

REPORT INFORMATION
  Report Type: Report from Study
  Country: US (occurrence: US)
  Receive Date: 20170721
  Receipt Date: 20200314
  Transmission Date: 20200409
  Serious: Yes (Hospitalization, Other)
  Sender: FDA-Public Use
  Company Number: US-ACTELION-A-NJ2016-138553

PATIENT
  Age: 71 Year
  Sex: Male
  Weight: 117.46 kg

DRUGS (19)
  1. UPTRAVI [Suspect]
     Active Substance: SELEXIPAG
     Indication: PULMONARY ARTERIAL HYPERTENSION
     Dosage: 400 MCG, BID
     Route: 048
     Dates: start: 20180301
  2. INSULIN ASPART [Concomitant]
     Active Substance: INSULIN ASPART
  3. DULOXETINE. [Concomitant]
     Active Substance: DULOXETINE
  4. AMARYL [Concomitant]
     Active Substance: GLIMEPIRIDE
     Dosage: UNK
     Dates: start: 2018
  5. OPSUMIT [Suspect]
     Active Substance: MACITENTAN
     Indication: PULMONARY ARTERIAL HYPERTENSION
     Dosage: 10 MG, QD
     Route: 048
     Dates: start: 20150501
  6. LOSARTAN. [Concomitant]
     Active Substance: LOSARTAN
  7. WARFARIN [Concomitant]
     Active Substance: WARFARIN
  8. ASPIRIN. [Concomitant]
     Active Substance: ASPIRIN
  9. CLINDAMYCIN. [Concomitant]
     Active Substance: CLINDAMYCIN
     Dosage: UNK
     Dates: start: 20180505
  10. POTASSIUM [Concomitant]
     Active Substance: POTASSIUM
  11. INSULIN GLARGINE [Concomitant]
     Active Substance: INSULIN GLARGINE
  12. ATORVASTATIN [Concomitant]
     Active Substance: ATORVASTATIN
  13. TYVASO [Concomitant]
     Active Substance: TREPROSTINIL
     Dosage: 30 MCG, TID
     Dates: start: 201308, end: 20160421
  14. BUMEX [Concomitant]
     Active Substance: BUMETANIDE
  15. UPTRAVI [Suspect]
     Active Substance: SELEXIPAG
     Dosage: UNK
     Route: 048
     Dates: start: 20160407
  16. TADALAFIL. [Concomitant]
     Active Substance: TADALAFIL
     Dosage: 20 MG, BID
     Dates: start: 20110628
  17. METOPROLOL. [Concomitant]
     Active Substance: METOPROLOL
  18. METOLAZONE. [Concomitant]
     Active Substance: METOLAZONE
  19. TAMSULOSIN [Concomitant]
     Active Substance: TAMSULOSIN

REACTIONS (54)
  - Erythema [Recovered/Resolved]
  - Respiratory failure [Recovered/Resolved with Sequelae]
  - Diarrhoea [Unknown]
  - Acute kidney injury [Recovered/Resolved]
  - Arthralgia [Unknown]
  - Fall [Unknown]
  - Toe amputation [Unknown]
  - Pyrexia [Not Recovered/Not Resolved]
  - Abdominal pain [Recovered/Resolved]
  - Tachycardia [Unknown]
  - Hypoxia [Unknown]
  - Cardiac output decreased [Recovered/Resolved]
  - Body temperature increased [Unknown]
  - Hypotension [Recovering/Resolving]
  - Blood pressure systolic decreased [Unknown]
  - International normalised ratio increased [Recovered/Resolved]
  - Hepatocellular injury [Recovered/Resolved]
  - Osteomyelitis [Recovered/Resolved]
  - Burning sensation [Unknown]
  - Septic shock [Recovered/Resolved with Sequelae]
  - Musculoskeletal pain [Unknown]
  - Non-cardiac chest pain [Unknown]
  - Oxygen saturation decreased [Recovering/Resolving]
  - Cellulitis [Recovered/Resolved]
  - Aspartate aminotransferase increased [Recovered/Resolved]
  - Pulmonary oedema [Recovered/Resolved]
  - Pulmonary hypertension [Unknown]
  - Klebsiella infection [Not Recovered/Not Resolved]
  - Nausea [Recovered/Resolved]
  - Wound [Unknown]
  - Chest pain [Recovered/Resolved]
  - Atrial fibrillation [Recovered/Resolved]
  - Alanine aminotransferase increased [Recovered/Resolved]
  - Oedema peripheral [Unknown]
  - Chills [Unknown]
  - Diabetic foot [Recovered/Resolved]
  - Dyspnoea [Recovering/Resolving]
  - Sinus tachycardia [Recovered/Resolved]
  - Clostridium difficile colitis [Recovered/Resolved]
  - Pleural effusion [Not Recovered/Not Resolved]
  - Myalgia [Recovered/Resolved]
  - Hypertension [Recovering/Resolving]
  - Heart rate increased [Recovered/Resolved]
  - Wound drainage [Unknown]
  - Colitis [Recovered/Resolved]
  - Confusional state [Recovering/Resolving]
  - Urinary tract infection [Not Recovered/Not Resolved]
  - Condition aggravated [Unknown]
  - Peripheral swelling [Recovered/Resolved]
  - Fatigue [Not Recovered/Not Resolved]
  - Dizziness [Unknown]
  - Atelectasis [Not Recovered/Not Resolved]
  - Dizziness postural [Unknown]
  - Transaminases increased [Recovered/Resolved]

NARRATIVE: CASE EVENT DATE: 20160408
